FAERS Safety Report 18600721 (Version 1)
Quarter: 2020Q4

REPORT INFORMATION
  Report Type: Spontaneous
  Country: US (occurrence: US)
  Receive Date: 20201209
  Receipt Date: 20201209
  Transmission Date: 20210114
  Serious: Yes (Life-Threatening, Hospitalization)
  Sender: FDA-Public Use
  Company Number: None

PATIENT
  Age: 79 Year
  Sex: Female
  Weight: 61.69 kg

DRUGS (9)
  1. CENTRUM SILVER [Concomitant]
     Active Substance: MINERALS\VITAMINS
  2. LEVOXYL [Concomitant]
     Active Substance: LEVOTHYROXINE SODIUM
  3. LOSARTAN POTASSIUM TABLETS, USP [Suspect]
     Active Substance: LOSARTAN POTASSIUM
     Indication: CARDIAC DISORDER
     Dosage: ?          QUANTITY:25 MG MILLIGRAM(S);OTHER FREQUENCY:ONCEDAILYINAM ;?
     Route: 048
     Dates: start: 20200724, end: 20200725
  4. ATORVASTATIN CALCIUM. [Concomitant]
     Active Substance: ATORVASTATIN CALCIUM
  5. CITRICAL [Concomitant]
     Active Substance: CALCIUM CITRATE
  6. PROTONIX [Concomitant]
     Active Substance: PANTOPRAZOLE SODIUM
  7. FERROUS GLUCONATE [Concomitant]
     Active Substance: FERROUS GLUCONATE
  8. CLOPIDOGEL BISULFATE (PLAVIX) [Concomitant]
  9. AMLODIPINE BESYLATE. [Concomitant]
     Active Substance: AMLODIPINE BESYLATE

REACTIONS (5)
  - Anaphylactoid reaction [None]
  - Product substitution issue [None]
  - Near death experience [None]
  - Dysphagia [None]
  - Dyspnoea [None]

NARRATIVE: CASE EVENT DATE: 20200724
